FAERS Safety Report 4271406-9 (Version None)
Quarter: 2004Q1

REPORT INFORMATION
  Report Type: 
  Country: None (occurrence: None)
  Receive Date: 20040113
  Receipt Date: 20040106
  Transmission Date: 20041129
  Serious: Yes (Hospitalization, Disabling)
  Sender: FDA-Public Use
  Company Number: 02P-163-0200698-00

PATIENT
  Sex: Female

DRUGS (26)
  1. VICODIN ES [Suspect]
     Indication: CERVICOBRACHIAL SYNDROME
     Dosage: AS REQUIRED, PER ORAL
     Route: 048
     Dates: start: 20020610, end: 20030125
  2. VICODIN ES [Suspect]
     Indication: CERVICOBRACHIAL SYNDROME
     Dosage: AS REQUIRED, PER ORAL
     Route: 048
     Dates: start: 19971208, end: 20030522
  3. CELECOXIB [Suspect]
     Indication: OSTEOARTHRITIS
     Dates: start: 19990302, end: 20000911
  4. SERTRALINE HCL [Concomitant]
  5. TRAMADOL HCL [Concomitant]
  6. FLUOXETINE HYDROCHLORIDE [Concomitant]
  7. MULTIVITAMIN [Concomitant]
  8. FOLIC ACID [Concomitant]
  9. LANSOPRAZOLE [Concomitant]
  10. VHC [Concomitant]
  11. PAROXETINE HCL [Concomitant]
  12. RANITIDINE HYDROCHLORIDE [Concomitant]
  13. VICOPROFEN [Concomitant]
  14. CLOPIDOGREL BISULFATE [Concomitant]
  15. LACTULOSE [Concomitant]
  16. OXYCODONE HCL [Concomitant]
  17. AMITRIPTYLINE HYDROCHLORIDE [Concomitant]
  18. BUSPIRONE HCL [Concomitant]
  19. CEFADROXIL [Concomitant]
  20. PSEUDOEPHEDRINE HYDROCHLORIDE [Concomitant]
  21. METHYLPREDNISOLONE [Concomitant]
  22. ESOMEPRAZOLE [Concomitant]
  23. IBUPROFEN [Concomitant]
  24. FOLATE [Concomitant]
  25. CARAGATE [Concomitant]
  26. LANSOPRAZOLE [Concomitant]

REACTIONS (49)
  - ANAEMIA [None]
  - ANXIETY [None]
  - ARTHRALGIA [None]
  - ARTHRITIS [None]
  - BLOOD TEST ABNORMAL [None]
  - CELLULITIS [None]
  - CONFUSIONAL STATE [None]
  - CONJUNCTIVITIS [None]
  - DEAFNESS [None]
  - DEAFNESS BILATERAL [None]
  - DEPRESSED LEVEL OF CONSCIOUSNESS [None]
  - DIZZINESS [None]
  - DRUG ABUSER [None]
  - DRUG DEPENDENCE [None]
  - DRUG TOXICITY [None]
  - FALL [None]
  - FEELING HOT [None]
  - GASTRITIS [None]
  - GASTROINTESTINAL HAEMORRHAGE [None]
  - HEPATIC CIRRHOSIS [None]
  - HIATUS HERNIA [None]
  - HYPERSPLENISM ACQUIRED [None]
  - HYPERTENSION [None]
  - HYPOVOLAEMIC SHOCK [None]
  - INJURY [None]
  - JOINT EFFUSION [None]
  - JOINT INJURY [None]
  - JOINT RANGE OF MOTION DECREASED [None]
  - JOINT SPRAIN [None]
  - LIVER DISORDER [None]
  - MENISCUS LESION [None]
  - MYALGIA [None]
  - OEDEMA PERIPHERAL [None]
  - OSTEOARTHRITIS [None]
  - OSTEOPENIA [None]
  - PAIN [None]
  - PAIN IN EXTREMITY [None]
  - PHLEBITIS [None]
  - PORTAL HYPERTENSION [None]
  - RECTAL HAEMORRHAGE [None]
  - SCRATCH [None]
  - SENSATION OF PRESSURE IN EAR [None]
  - SINUSITIS [None]
  - SPLENOMEGALY [None]
  - SYNOVITIS [None]
  - THROMBOCYTOPENIA [None]
  - UPPER GASTROINTESTINAL HAEMORRHAGE [None]
  - VARICOSE VEIN [None]
  - VENOUS INSUFFICIENCY [None]
